FAERS Safety Report 23137498 (Version 1)
Quarter: 2023Q4

REPORT INFORMATION
  Report Type: Spontaneous
  Country: US (occurrence: US)
  Receive Date: 20231102
  Receipt Date: 20231102
  Transmission Date: 20240110
  Serious: Yes (Other)
  Sender: FDA-Public Use
  Company Number: US-PURDUE PHARMA-USA-2023-0304090

PATIENT

DRUGS (1)
  1. OXYCONTIN [Suspect]
     Active Substance: OXYCODONE HYDROCHLORIDE
     Indication: Product used for unknown indication
     Dosage: 40 MILLIGRAM, MONTHLY (130-150/40MG PILLS PER MONTH FOR 10 YEARS)
     Route: 048

REACTIONS (3)
  - Drug dependence [Unknown]
  - Depression [Unknown]
  - Unevaluable event [Unknown]
